FAERS Safety Report 5246385-8 (Version None)
Quarter: 2007Q1

REPORT INFORMATION
  Report Type: 
  Country: None (occurrence: None)
  Receive Date: 20070226
  Receipt Date: 20070220
  Transmission Date: 20070707
  Serious: Yes (Life-Threatening, Hospitalization)
  Sender: FDA-Public Use
  Company Number: HQWYE200120FEB07

PATIENT
  Sex: Male

DRUGS (1)
  1. TYGACIL [Suspect]
     Dosage: 100 MG START THEN 50 MG EVERY 12 HOURS
     Route: 042
     Dates: start: 20070205, end: 20070209

REACTIONS (1)
  - BLOOD POTASSIUM INCREASED [None]
